FAERS Safety Report 20087204 (Version 1)
Quarter: 2021Q4

REPORT INFORMATION
  Report Type: Spontaneous
  Country: US (occurrence: None)
  Receive Date: 20211118
  Receipt Date: 20211118
  Transmission Date: 20220303
  Serious: Yes (Hospitalization)
  Sender: FDA-Public Use
  Company Number: None

PATIENT
  Age: 84 Year
  Sex: Male

DRUGS (8)
  1. DROXIDOPA [Suspect]
     Active Substance: DROXIDOPA
     Indication: Parkinson^s disease
     Dosage: FREQUENCY : TWICE A DAY;?
     Route: 048
     Dates: start: 20210603
  2. ASPIRIN EC [Concomitant]
  3. ATORVASTATIN [Concomitant]
  4. CELEXA [Concomitant]
  5. SINEMET CR [Concomitant]
  6. LEVOTHYROXIN [Concomitant]
  7. MIDODRINE [Concomitant]
  8. PROSCAR [Concomitant]

REACTIONS (1)
  - Fall [None]

NARRATIVE: CASE EVENT DATE: 20211029
